FAERS Safety Report 5292413-3 (Version None)
Quarter: 2007Q2

REPORT INFORMATION
  Report Type: 
  Country: None (occurrence: None)
  Receive Date: 20070410
  Receipt Date: 20070329
  Transmission Date: 20071010
  Serious: Yes (Death, Hospitalization, Other)
  Sender: FDA-Public Use
  Company Number: US-PFIZER INC-2006022299

PATIENT
  Sex: Male
  Weight: 102.1 kg

DRUGS (4)
  1. NEURONTIN [Suspect]
     Indication: BACK PAIN
  2. TRAZODONE HYDROCHLORIDE [Suspect]
     Indication: DRUG USE FOR UNKNOWN INDICATION
     Dosage: DAILY DOSE:50MG
  3. CHLORDIAZEPOXIDE [Concomitant]
     Route: 065
  4. PROZAC [Concomitant]
     Route: 065

REACTIONS (11)
  - ALCOHOL POISONING [None]
  - ANXIETY [None]
  - COMPLETED SUICIDE [None]
  - DELIRIUM TREMENS [None]
  - DEPRESSION [None]
  - DRUG ABUSER [None]
  - DRUG INEFFECTIVE [None]
  - GUN SHOT WOUND [None]
  - HEPATITIS ALCOHOLIC [None]
  - SUICIDAL IDEATION [None]
  - TRAUMATIC BRAIN INJURY [None]
